FAERS Safety Report 4339589-X (Version None)
Quarter: 2004Q1

REPORT INFORMATION
  Report Type: 
  Country: None (occurrence: None)
  Receive Date: 20040329
  Receipt Date: 20040108
  Transmission Date: 20041129
  Serious: No
  Sender: FDA-Public Use
  Company Number: 04P-163-0246666-00

PATIENT
  Age: 64 Year
  Sex: Female

DRUGS (9)
  1. HUMIRA [Suspect]
     Indication: RHEUMATOID ARTHRITIS
     Dosage: 40 MG, 1 IN 2 WK, SUBCUTANEOUS
     Route: 058
     Dates: start: 20040102
  2. LEFLUNOMIDE [Concomitant]
  3. BUCINDOLOL HYDROCHLORIDE [Concomitant]
  4. ZOLPIDEM TARTRATE [Concomitant]
  5. CITALOPRAM HYDROCHLORIDE [Concomitant]
  6. ESOMEPRAZOLE [Concomitant]
  7. SUMATRIPTAN [Concomitant]
  8. HYDROCODONE [Concomitant]
  9. PSEUDOEPHEDRINE HCL [Concomitant]

REACTIONS (1)
  - BRONCHITIS [None]
